FAERS Safety Report 4662292-3 (Version None)
Quarter: 2005Q2

REPORT INFORMATION
  Report Type: 
  Country: None (occurrence: None)
  Receive Date: 20050512
  Receipt Date: 20050425
  Transmission Date: 20051028
  Serious: Yes (Hospitalization, Other)
  Sender: FDA-Public Use
  Company Number: US_0411107613

PATIENT
  Age: 45 Year
  Sex: Male
  Weight: 112 kg

DRUGS (23)
  1. ZYPREXA [Suspect]
     Dosage: 15 MG
     Dates: start: 20000201
  2. SYMBYAX [Concomitant]
     Dates: start: 20000201, end: 20010728
  3. PROZAC-ORAL (FLUOXETINE) (DLUOXETINE HYDROCHLORIDE0 [Suspect]
     Dates: start: 20000213, end: 20010125
  4. SEROQUEL [Concomitant]
  5. GEODON [Concomitant]
  6. DEPAKOTE [Concomitant]
  7. LITHIUM [Concomitant]
  8. REMERON (MIRTAZAPINE ORIFARM) [Concomitant]
  9. SEROZONE (NEFAZODONE HYDROCHLORIDE) [Concomitant]
  10. EFFEXOR (VNLAFAZINE HYDROCHLORIDE) [Concomitant]
  11. GLUCOPHATE (METFORMIN) [Concomitant]
  12. TRAZODONE HCL [Concomitant]
  13. NEURONTIN (GABAPENTIN PFIZER) [Concomitant]
  14. XANAX (ALPRAZOLAM DUM) [Concomitant]
  15. LASIX [Concomitant]
  16. KCL (POTASSIUM CHLORIDE) [Concomitant]
  17. KLONOPIN [Concomitant]
  18. TRAZODONE [Concomitant]
  19. HYDROXYZINE [Concomitant]
  20. BUPROPION [Concomitant]
  21. RITALIN [Concomitant]
  22. ZOLOFT [Concomitant]
  23. PRINIVIL [Concomitant]

REACTIONS (12)
  - DIABETES MELLITUS [None]
  - DISEASE RECURRENCE [None]
  - EROSIVE OESOPHAGITIS [None]
  - GASTROINTESTINAL HAEMORRHAGE [None]
  - HEPATITIS C [None]
  - HYPERLIPIDAEMIA [None]
  - LIVER DISORDER [None]
  - MOOD DISORDER DUE TO A GENERAL MEDICAL CONDITION [None]
  - PANCREATIC ENLARGEMENT [None]
  - PANCREATITIS [None]
  - PEPTIC ULCER [None]
  - WEIGHT FLUCTUATION [None]
